FAERS Safety Report 7183774-9 (Version None)
Quarter: 2010Q4

REPORT INFORMATION
  Report Type: 
  Country: None (occurrence: None)
  Receive Date: 20101222
  Receipt Date: 20101221
  Transmission Date: 20110411
  Serious: Yes (Other)
  Sender: FDA-Public Use
  Company Number: US-ROXANE LABORATORIES, INC.-2010-RO-01717RO

PATIENT
  Age: 29 Year
  Sex: Female

DRUGS (1)
  1. FLUCONAZOLE [Suspect]
     Indication: MENINGITIS CRYPTOCOCCAL
     Dosage: 400 MG
     Route: 048

REACTIONS (1)
  - DRUG HYPERSENSITIVITY [None]
